FAERS Safety Report 6295564-X (Version None)
Quarter: 2009Q3

REPORT INFORMATION
  Report Type: 
  Country: None (occurrence: None)
  Receive Date: 20090731
  Receipt Date: 20090722
  Transmission Date: 20100115
  Serious: Yes (Other)
  Sender: FDA-Public Use
  Company Number: 332496

PATIENT
  Age: 82 Year
  Sex: Female
  Weight: 75.7 kg

DRUGS (29)
  1. ETOMIDATE [Suspect]
     Indication: INDUCTION OF ANAESTHESIA
     Dosage: INTRAVENOUS
     Route: 042
     Dates: start: 20081002, end: 20081002
  2. MIDAZOLAM HYDROCHLORIDE [Suspect]
     Indication: SEDATION
     Dosage: INTRAVENOUS
     Route: 042
     Dates: start: 20081002, end: 20081002
  3. LINEZOLID [Suspect]
     Indication: PNEUMONIA STAPHYLOCOCCAL
     Dosage: INTERVAL, BID, INTRAVENOUS
     Route: 042
     Dates: start: 20081002, end: 20081008
  4. VANCOMYCIN [Suspect]
     Indication: PNEUMONIA STAPHYLOCOCCAL
     Dosage: INTERVAL, BID, INTRAVENOUS
     Route: 042
     Dates: start: 20081002, end: 20081002
  5. COMBIVENT [Concomitant]
  6. FERROUS SULFATE TAB [Concomitant]
  7. (POLYCARBOPHIL) [Concomitant]
  8. (ISOSORBIDE) [Concomitant]
  9. ENOXAPARIN SODIUM [Concomitant]
  10. GUAIFENESIN [Concomitant]
  11. (NOVOLIN /00030501/) [Concomitant]
  12. PANTOPRAZOLE SODIUM [Concomitant]
  13. SENNA-MINT WAF [Concomitant]
  14. (MONTELUKAST) [Concomitant]
  15. SOTALOL HCL [Concomitant]
  16. (SIMVASTIN-MEPHA) [Concomitant]
  17. AVELOX [Concomitant]
  18. CALCIUM GLUCONATE [Concomitant]
  19. FENTANYL [Concomitant]
  20. KAYEXALATE [Concomitant]
  21. PREVACID [Concomitant]
  22. ZOSYN [Concomitant]
  23. DEXTROSE 50% [Concomitant]
  24. (PERIDEX /00133002/) [Concomitant]
  25. HYDRALAZINE HCL [Concomitant]
  26. (NOVOLIN /00030501/) [Concomitant]
  27. LANTUS [Concomitant]
  28. (MAGNESIUM OXIDE) [Concomitant]
  29. (MEPREDNISONE) [Concomitant]

REACTIONS (3)
  - CARDIO-RESPIRATORY ARREST [None]
  - GALLBLADDER DISORDER [None]
  - ISCHAEMIC HEPATITIS [None]
